FAERS Safety Report 14619783 (Version 1)
Quarter: 2018Q1

REPORT INFORMATION
  Report Type: Spontaneous
  Country: RU (occurrence: RU)
  Receive Date: 20180309
  Receipt Date: 20180309
  Transmission Date: 20180509
  Serious: Yes (Other)
  Sender: FDA-Public Use
  Company Number: RU-ASTRAZENECA-2018SE27720

PATIENT
  Age: 45 Year
  Sex: Male
  Weight: 105 kg

DRUGS (5)
  1. ACECARDOL [Concomitant]
     Active Substance: ASPIRIN
  2. ATORVASTATIN [Concomitant]
     Active Substance: ATORVASTATIN
  3. BRILINTA [Suspect]
     Active Substance: TICAGRELOR
     Indication: MYOCARDIAL INFARCTION
     Route: 048
     Dates: start: 20171121
  4. METOPROLOL. [Concomitant]
     Active Substance: METOPROLOL
  5. PERINDOPRIL [Concomitant]
     Active Substance: PERINDOPRIL

REACTIONS (3)
  - Rib fracture [Unknown]
  - Road traffic accident [Unknown]
  - Cough [Recovered/Resolved]
